FAERS Safety Report 6738125-8 (Version None)
Quarter: 2010Q2

REPORT INFORMATION
  Report Type: 
  Country: None (occurrence: None)
  Receive Date: 20100524
  Receipt Date: 20100515
  Transmission Date: 20101027
  Serious: No
  Sender: FDA-Public Use
  Company Number: JP-B.I. PHARMACEUTICALS,INC./RIDGEFIELD-2010-BP-04722NB

PATIENT
  Age: 75 Year
  Sex: Female

DRUGS (2)
  1. BI-SIFROL TABLETS [Suspect]
     Indication: PARKINSON'S DISEASE
     Dosage: 1.5 MG
     Route: 048
     Dates: start: 20100201
  2. MENESIT [Concomitant]
     Indication: PARKINSON'S DISEASE
     Dosage: 150 MG
     Route: 048

REACTIONS (2)
  - OEDEMA [None]
  - PAIN [None]
